FAERS Safety Report 22614224 (Version 1)
Quarter: 2023Q2

REPORT INFORMATION
  Report Type: Spontaneous
  Country: CN (occurrence: CN)
  Receive Date: 20230619
  Receipt Date: 20230619
  Transmission Date: 20230722
  Serious: Yes (Life-Threatening, Hospitalization, Other)
  Sender: FDA-Public Use
  Company Number: CN-TAKEDA-2023TUS058777

PATIENT
  Sex: Female
  Weight: 45 kg

DRUGS (5)
  1. ADCETRIS [Suspect]
     Active Substance: BRENTUXIMAB VEDOTIN
     Indication: Non-Hodgkin^s lymphoma
     Dosage: 100 MILLIGRAM, QD
     Route: 065
     Dates: start: 20230527, end: 20230527
  2. CYCLOPHOSPHAMIDE [Suspect]
     Active Substance: CYCLOPHOSPHAMIDE
     Indication: Non-Hodgkin^s lymphoma
     Dosage: 1.2 GRAM, QD
     Route: 041
     Dates: start: 20230528, end: 20230528
  3. PIRARUBICIN HYDROCHLORIDE [Suspect]
     Active Substance: PIRARUBICIN HYDROCHLORIDE
     Indication: Non-Hodgkin^s lymphoma
     Dosage: 40 MILLIGRAM, QD
     Route: 041
     Dates: start: 20230528, end: 20230528
  4. PREDNISOLONE [Suspect]
     Active Substance: PREDNISOLONE
     Indication: Non-Hodgkin^s lymphoma
     Dosage: 90 MILLIGRAM, QD
     Route: 041
     Dates: start: 20230526, end: 20230531
  5. MESNA [Concomitant]
     Active Substance: MESNA
     Indication: Chemotherapy
     Dosage: 1.2 GRAM, TID
     Route: 041
     Dates: start: 20230528, end: 20230528

REACTIONS (1)
  - Myelosuppression [Recovering/Resolving]

NARRATIVE: CASE EVENT DATE: 20230603
